FAERS Safety Report 16651099 (Version 1)
Quarter: 2019Q3

REPORT INFORMATION
  Report Type: Spontaneous
  Country: US (occurrence: US)
  Receive Date: 20190617
  Receipt Date: 20190617
  Transmission Date: 20191004
  Serious: Yes (Hospitalization)
  Sender: FDA-Public Use
  Company Number: None

PATIENT
  Sex: Female

DRUGS (3)
  1. BUPROPH NCL [Concomitant]
  2. ENBREL [Concomitant]
     Active Substance: ETANERCEPT
  3. ENBREL [Suspect]
     Active Substance: ETANERCEPT
     Indication: PRODUCT USED FOR UNKNOWN INDICATION
     Route: 058
     Dates: start: 20190524

REACTIONS (3)
  - Diarrhoea [None]
  - Dehydration [None]
  - Vomiting [None]
